FAERS Safety Report 18223397 (Version 3)
Quarter: 2020Q4

REPORT INFORMATION
  Report Type: Report from Study
  Country: CA (occurrence: CA)
  Receive Date: 20200902
  Receipt Date: 20201014
  Transmission Date: 20210113
  Serious: Yes (Hospitalization, Other)
  Sender: FDA-Public Use
  Company Number: CA-JNJFOC-20200834876

PATIENT
  Age: 48 Year
  Sex: Female
  Weight: 55.8 kg

DRUGS (2)
  1. STELARA [Suspect]
     Active Substance: USTEKINUMAB
     Indication: CROHN^S DISEASE
     Route: 058
     Dates: start: 20191111, end: 202006
  2. STELARA [Suspect]
     Active Substance: USTEKINUMAB
     Route: 058
     Dates: start: 20200821

REACTIONS (8)
  - Therapeutic response decreased [Unknown]
  - Treatment noncompliance [Unknown]
  - Product use issue [Unknown]
  - Enteritis [Unknown]
  - Crohn^s disease [Unknown]
  - Off label use [Unknown]
  - Hepatic cirrhosis [Unknown]
  - Hepatitis [Unknown]

NARRATIVE: CASE EVENT DATE: 202007
